FAERS Safety Report 11483740 (Version 1)
Quarter: 2015Q3

REPORT INFORMATION
  Report Type: Spontaneous
  Country: US (occurrence: US)
  Receive Date: 20150903
  Receipt Date: 20150903
  Transmission Date: 20151125
  Serious: No
  Sender: FDA-Public Use
  Company Number: US-ELI_LILLY_AND_COMPANY-US201206006095

PATIENT
  Sex: Female
  Weight: 81.63 kg

DRUGS (2)
  1. CYMBALTA [Suspect]
     Active Substance: DULOXETINE HYDROCHLORIDE
     Indication: DEPRESSION
     Dosage: 20 MG, QD
     Dates: start: 201107
  2. HORMONES [Suspect]
     Active Substance: UNSPECIFIED INGREDIENT

REACTIONS (2)
  - Cold urticaria [Not Recovered/Not Resolved]
  - C-reactive protein increased [Not Recovered/Not Resolved]
